FAERS Safety Report 18687747 (Version 1)
Quarter: 2020Q4

REPORT INFORMATION
  Report Type: Spontaneous
  Country: US (occurrence: US)
  Receive Date: 20201229
  Receipt Date: 20201229
  Transmission Date: 20210114
  Serious: Yes (Other)
  Sender: FDA-Public Use
  Company Number: None

PATIENT
  Age: 72 Year
  Sex: Female
  Weight: 61.69 kg

DRUGS (1)
  1. LEVOTHYROXINE 50MCG [Suspect]
     Active Substance: LEVOTHYROXINE
     Route: 048
     Dates: start: 201910, end: 201912

REACTIONS (2)
  - Palpitations [None]
  - Product substitution issue [None]

NARRATIVE: CASE EVENT DATE: 201912
